FAERS Safety Report 6653452-0 (Version None)
Quarter: 2010Q1

REPORT INFORMATION
  Report Type: 
  Country: None (occurrence: None)
  Receive Date: 20100326
  Receipt Date: 20100312
  Transmission Date: 20100710
  Serious: Yes (Other)
  Sender: FDA-Public Use
  Company Number: US-ROCHE-692884

PATIENT
  Sex: Female

DRUGS (4)
  1. XELODA [Suspect]
     Indication: DRUG USE FOR UNKNOWN INDICATION
     Dosage: START DATE: THREE WEEKS PRIOR TO STARTING LAPATINIB; ONE WEEK ON AND ONE WEEK OFF
     Route: 065
     Dates: end: 20100207
  2. XELODA [Suspect]
     Dosage: ONE WEEK ON AND ONE WEEK OFF
     Route: 065
     Dates: start: 20100208
  3. TYKERB [Suspect]
     Indication: BREAST CANCER
     Dosage: 5 TABLETS DAILY
     Route: 048
     Dates: start: 20100101, end: 20100207
  4. TYKERB [Suspect]
     Dosage: DOSE REDUCED
     Route: 048
     Dates: start: 20100208

REACTIONS (2)
  - DIARRHOEA [None]
  - RETINAL DETACHMENT [None]
